FAERS Safety Report 23551638 (Version 1)
Quarter: 2024Q1

REPORT INFORMATION
  Report Type: Spontaneous
  Country: US (occurrence: US)
  Receive Date: 20240222
  Receipt Date: 20240222
  Transmission Date: 20240409
  Serious: Yes (Other)
  Sender: FDA-Public Use
  Company Number: US-STRIDES ARCOLAB LIMITED-2023SP003779

PATIENT
  Sex: Male

DRUGS (5)
  1. ETOPOSIDE [Suspect]
     Active Substance: ETOPOSIDE
     Indication: Neuroblastoma
     Dosage: 50 MILLIGRAM/SQ. METER; PER DAY; DAYS 1-21; PALLIATIVE METRONOMIC CHEMOTHERAPY
     Route: 048
  2. ETOPOSIDE [Suspect]
     Active Substance: ETOPOSIDE
     Dosage: UNK; REDUCED
     Route: 065
  3. CYCLOPHOSPHAMIDE [Suspect]
     Active Substance: CYCLOPHOSPHAMIDE
     Indication: Neuroblastoma
     Dosage: 75 MILLIGRAM/SQ. METER; PER DAY; DAYS 22-41; PALLIATIVE METRONOMIC CHEMOTHERAPY
     Route: 048
  4. CYCLOPHOSPHAMIDE [Suspect]
     Active Substance: CYCLOPHOSPHAMIDE
     Dosage: UNK; REDUCED
     Route: 065
  5. SULINDAC [Suspect]
     Active Substance: SULINDAC
     Indication: Neuroblastoma
     Dosage: 4 MILLIGRAM/KILOGRAM; PER DAY
     Route: 065

REACTIONS (3)
  - Haematotoxicity [Unknown]
  - Pneumonia aspiration [Unknown]
  - Drug ineffective for unapproved indication [Unknown]
